FAERS Safety Report 18056416 (Version 1)
Quarter: 2020Q3

REPORT INFORMATION
  Report Type: Spontaneous
  Country: US (occurrence: US)
  Receive Date: 20200722
  Receipt Date: 20200722
  Transmission Date: 20201103
  Serious: No
  Sender: FDA-Public Use
  Company Number: US-PFIZER INC-2020277435

PATIENT
  Age: 77 Year
  Sex: Female

DRUGS (1)
  1. DETROL [Suspect]
     Active Substance: TOLTERODINE TARTRATE
     Dosage: 2 MG, 2X/DAY
     Route: 048

REACTIONS (1)
  - Back pain [Unknown]
